FAERS Safety Report 4459161-0 (Version None)
Quarter: 2004Q3

REPORT INFORMATION
  Report Type: 
  Country: None (occurrence: None)
  Receive Date: 20040920
  Receipt Date: 20040920
  Transmission Date: 20050211
  Serious: Yes (Hospitalization)
  Sender: FDA-Public Use
  Company Number: None

PATIENT
  Age: 65 Year
  Sex: Male
  Weight: 107.4118 kg

DRUGS (8)
  1. GEMCITABINE  1 GM / M2 [Suspect]
     Indication: METASTASES TO LUNG
     Dosage: 1 GM./M2/30 MINUTE IV
     Route: 042
     Dates: start: 20040809
  2. GEMCITABINE  1 GM / M2 [Suspect]
     Indication: RENAL CELL CARCINOMA STAGE UNSPECIFIED
     Dosage: 1 GM./M2/30 MINUTE IV
     Route: 042
     Dates: start: 20040809
  3. LEUCOVORIN CALCIUM [Suspect]
     Indication: METASTASES TO LUNG
     Dosage: 200 MG /M2 30 MINUTES IV
     Route: 042
     Dates: start: 20040809
  4. LEUCOVORIN CALCIUM [Suspect]
     Indication: RENAL CELL CARCINOMA STAGE UNSPECIFIED
     Dosage: 200 MG /M2 30 MINUTES IV
     Route: 042
     Dates: start: 20040809
  5. FLUOROURACIL [Suspect]
     Indication: METASTASES TO LUNG
     Dosage: 400 MG/M2 30 MIN IV
     Route: 042
     Dates: start: 20040809
  6. FLUOROURACIL [Suspect]
     Indication: RENAL CELL CARCINOMA STAGE UNSPECIFIED
     Dosage: 400 MG/M2 30 MIN IV
     Route: 042
     Dates: start: 20040809
  7. FLUOROURACIL [Suspect]
     Indication: METASTASES TO LUNG
     Dosage: 600 MG /M2 IV PUMP 24 H
     Route: 042
     Dates: start: 20040809
  8. FLUOROURACIL [Suspect]
     Indication: RENAL CELL CARCINOMA STAGE UNSPECIFIED
     Dosage: 600 MG /M2 IV PUMP 24 H
     Route: 042
     Dates: start: 20040809

REACTIONS (3)
  - CATHETER RELATED INFECTION [None]
  - CELLULITIS [None]
  - STAPHYLOCOCCAL BACTERAEMIA [None]
